FAERS Safety Report 5371445-0 (Version None)
Quarter: 2007Q2

REPORT INFORMATION
  Report Type: 
  Country: None (occurrence: None)
  Receive Date: 20070622
  Receipt Date: 20070608
  Transmission Date: 20071010
  Serious: Yes (Other)
  Sender: FDA-Public Use
  Company Number: DSA_30058_2007

PATIENT
  Age: 52 Year
  Sex: Female

DRUGS (1)
  1. ATIVAN [Suspect]
     Dosage: (DF)

REACTIONS (3)
  - ANXIETY [None]
  - CHEST DISCOMFORT [None]
  - PALPITATIONS [None]
